FAERS Safety Report 9262430 (Version 1)
Quarter: 2013Q2

REPORT INFORMATION
  Report Type: Spontaneous
  Country: US (occurrence: None)
  Receive Date: 20130425
  Receipt Date: 20130425
  Transmission Date: 20140414
  Serious: Yes (Other)
  Sender: FDA-Public Use
  Company Number: None

PATIENT
  Age: 38 Year
  Sex: Male
  Weight: 95.26 kg

DRUGS (1)
  1. HUMIRA [Suspect]
     Dates: start: 20120827, end: 20130315

REACTIONS (3)
  - Chest pain [None]
  - Chest discomfort [None]
  - Acne [None]
